FAERS Safety Report 9296589 (Version 2)
Quarter: 2013Q3

REPORT INFORMATION
  Report Type: Spontaneous
  Country: FR (occurrence: FR)
  Receive Date: 20130517
  Receipt Date: 20130911
  Transmission Date: 20140515
  Serious: Yes (Other)
  Sender: FDA-Public Use
  Company Number: PHHY2013FR040312

PATIENT
  Age: 75 Year
  Sex: Male
  Weight: 85 kg

DRUGS (4)
  1. DICLOFENAC SANDOZ [Suspect]
     Indication: OSTEOARTHRITIS
     Dosage: 50 MG, QD
     Route: 048
     Dates: start: 20130315, end: 20130316
  2. COVERSYL [Concomitant]
  3. METEOSPASMYL [Concomitant]
  4. CHONDROSULF [Concomitant]

REACTIONS (3)
  - Dysphagia [Recovered/Resolved]
  - Lip swelling [Recovered/Resolved]
  - Allergic oedema [Unknown]
